FAERS Safety Report 4278482-8 (Version None)
Quarter: 2004Q1

REPORT INFORMATION
  Report Type: 
  Country: None (occurrence: None)
  Receive Date: 20040102
  Receipt Date: 20031119
  Transmission Date: 20041129
  Serious: No
  Sender: FDA-Public Use
  Company Number: BLOC000738

PATIENT
  Age: 36 Year
  Sex: Female

DRUGS (4)
  1. MYOBLOC [Suspect]
     Indication: REFLEX SYMPATHETIC DYSTROPHY
     Dosage: INTRAMUSCULAR
     Route: 030
     Dates: start: 20020201, end: 20020201
  2. PAXIL [Concomitant]
  3. SOMA [Concomitant]
  4. TYLENOL W/ CODEINE NO. 2 (PARACETAMOL) ??/??/???? - [Concomitant]

REACTIONS (7)
  - ACCOMMODATION DISORDER [None]
  - CONSTIPATION [None]
  - DRY MOUTH [None]
  - HEADACHE [None]
  - KERATOCONJUNCTIVITIS SICCA [None]
  - NECK PAIN [None]
  - VISION BLURRED [None]
